FAERS Safety Report 4361398-6 (Version None)
Quarter: 2004Q2

REPORT INFORMATION
  Report Type: 
  Country: None (occurrence: None)
  Receive Date: 20040521
  Receipt Date: 20040511
  Transmission Date: 20050107
  Serious: Yes (Hospitalization)
  Sender: FDA-Public Use
  Company Number: PHHO2004JP06972

PATIENT
  Age: 16 Year
  Sex: Female
  Weight: 40 kg

DRUGS (10)
  1. SANDIMMUNE [Suspect]
     Indication: HEART TRANSPLANT
     Dosage: 200 MG, UNK
     Route: 048
     Dates: end: 19961022
  2. SANDIMMUNE [Suspect]
     Dosage: 180 MG, UNK
     Route: 048
     Dates: start: 19961023, end: 20000907
  3. SANDIMMUNE [Suspect]
     Dosage: 170 MG, UNK
     Route: 048
     Dates: start: 20000908, end: 20000919
  4. SANDIMMUNE [Suspect]
     Dosage: 160 MG, UNK
     Route: 048
     Dates: start: 20000920, end: 20010209
  5. EPOGIN [Concomitant]
     Dosage: 3000KIU
     Dates: start: 19910101, end: 20011002
  6. APRINOL [Concomitant]
     Route: 048
     Dates: start: 19941007
  7. APRINOL [Concomitant]
     Route: 048
  8. APRINOL [Concomitant]
     Route: 048
  9. JUSO-JO [Concomitant]
     Route: 048
     Dates: start: 19980218
  10. NEORAL [Suspect]
     Indication: HEART TRANSPLANT
     Dates: start: 20010210

REACTIONS (4)
  - ANAEMIA [None]
  - FIBROMA [None]
  - OEDEMA [None]
  - SURGERY [None]
